FAERS Safety Report 18836164 (Version 2)
Quarter: 2021Q1

REPORT INFORMATION
  Report Type: Report from Study
  Country: IE (occurrence: IE)
  Receive Date: 20210203
  Receipt Date: 20210204
  Transmission Date: 20210419
  Serious: Yes (Other)
  Sender: FDA-Public Use
  Company Number: IE-JNJFOC-20201150276

PATIENT
  Age: 78 Year
  Sex: Male

DRUGS (6)
  1. DESUNIN [Concomitant]
     Active Substance: CHOLECALCIFEROL
     Route: 050
  2. IMODIUM [Concomitant]
     Active Substance: LOPERAMIDE HYDROCHLORIDE
     Dosage: PRN (AS REQUIRED)
     Route: 050
  3. TAMSULOSIN [Concomitant]
     Active Substance: TAMSULOSIN
     Route: 050
  4. STELARA [Suspect]
     Active Substance: USTEKINUMAB
     Indication: CROHN^S DISEASE
     Route: 058
     Dates: start: 20200617
  5. PENTASA [Concomitant]
     Active Substance: MESALAMINE
     Route: 050
  6. VALSARTAN. [Concomitant]
     Active Substance: VALSARTAN
     Route: 050

REACTIONS (1)
  - Neoplasm malignant [Recovered/Resolved]
